FAERS Safety Report 4382827-8 (Version None)
Quarter: 2004Q2

REPORT INFORMATION
  Report Type: 
  Country: None (occurrence: None)
  Receive Date: 20040602
  Receipt Date: 20031001
  Transmission Date: 20050107
  Serious: Yes (Other)
  Sender: FDA-Public Use
  Company Number: NSADSS2002017211

PATIENT
  Age: 48 Year
  Sex: Female
  Weight: 72.5755 kg

DRUGS (8)
  1. PROPULSID [Suspect]
     Indication: DRUG USE FOR UNKNOWN INDICATION
     Dosage: 20 MG, ORAL
     Route: 048
     Dates: start: 19981124
  2. PROCARDIA [Concomitant]
  3. CLONIDINE [Concomitant]
  4. SYNTHROID [Concomitant]
  5. HYDROCHLOROTHIAZIDE [Concomitant]
  6. PREMARIN [Concomitant]
  7. PREVACID [Concomitant]
  8. AVAPRO [Concomitant]

REACTIONS (5)
  - CHEST PAIN [None]
  - DYSPHAGIA [None]
  - GASTRITIS [None]
  - MEDICATION ERROR [None]
  - MYOCARDIAL INFARCTION [None]
